FAERS Safety Report 5859695-8 (Version None)
Quarter: 2008Q3

REPORT INFORMATION
  Report Type: 
  Country: None (occurrence: None)
  Receive Date: 20080827
  Receipt Date: 20080822
  Transmission Date: 20090109
  Serious: Yes (Life-Threatening)
  Sender: FDA-Public Use
  Company Number: CA-WATSON-2008-05092

PATIENT
  Age: 29 Year
  Sex: Male

DRUGS (7)
  1. LIDOCAINE 1% W/ EPINEPHRINE 1:200,000 [Suspect]
     Indication: LOCAL ANAESTHESIA
     Dosage: UNK
     Route: 045
     Dates: start: 20080101
  2. LIDOCAINE 1% W/ EPINEPHRINE 1:200,000 [Suspect]
     Dosage: 4 ML INJECTED LOCALLY
     Route: 023
  3. METOPROLOL (WATSON LABORATORIES) [Suspect]
     Indication: PROCEDURAL HYPERTENSION
     Dosage: 5 MG, SINGLE IV PUSH
     Route: 042
  4. METOPROLOL (WATSON LABORATORIES) [Suspect]
     Dosage: 3 MG, SINGLE IV PUSH
     Route: 042
     Dates: start: 20080101
  5. PROPOFOL [Concomitant]
     Indication: ANAESTHESIA
     Dosage: 200 MG, SINGLE
     Route: 042
  6. FENTANYL-25 [Concomitant]
     Indication: ANAESTHESIA
     Dosage: 50 MCG X 1
     Route: 042
  7. SEVOFLURANE [Concomitant]
     Indication: ANAESTHESIA
     Route: 055

REACTIONS (5)
  - CARDIOGENIC SHOCK [None]
  - DRUG INTERACTION [None]
  - ELECTROMECHANICAL DISSOCIATION [None]
  - PULMONARY OEDEMA [None]
  - RESPIRATORY FAILURE [None]
